FAERS Safety Report 9872295 (Version 2)
Quarter: 2014Q1

REPORT INFORMATION
  Report Type: Spontaneous
  Country: AU (occurrence: AU)
  Receive Date: 20140205
  Receipt Date: 20140205
  Transmission Date: 20141002
  Serious: Yes (Other)
  Sender: FDA-Public Use
  Company Number: AU-009507513-1401AUS004530

PATIENT
  Age: 23 Year
  Sex: Female
  Weight: 103.5 kg

DRUGS (2)
  1. IMPLANON [Suspect]
     Indication: CONTRACEPTION
     Dosage: LEFT ARM
     Route: 059
     Dates: start: 20110120, end: 20140121
  2. IMPLANON [Suspect]
     Dosage: SECOND INSERTION, RIGHT ARM
     Route: 059
     Dates: start: 20140122

REACTIONS (6)
  - Surgery [Unknown]
  - Device deployment issue [Recovered/Resolved]
  - Device difficult to use [Recovered/Resolved]
  - Medical device complication [Recovered/Resolved]
  - Amenorrhoea [Recovered/Resolved]
  - Medical device complication [Recovered/Resolved]
